FAERS Safety Report 12378708 (Version 1)
Quarter: 2016Q2

REPORT INFORMATION
  Report Type: Spontaneous
  Country: US (occurrence: US)
  Receive Date: 20160517
  Receipt Date: 20160517
  Transmission Date: 20160815
  Serious: Yes (Other)
  Sender: FDA-Public Use
  Company Number: ADR-2015-01331

PATIENT
  Age: 65 Year
  Sex: Female

DRUGS (1)
  1. BACLOFEN. [Suspect]
     Active Substance: BACLOFEN
     Route: 037

REACTIONS (9)
  - Wound dehiscence [Unknown]
  - Staphylococcal infection [Unknown]
  - Chills [Recovered/Resolved]
  - Influenza like illness [Recovered/Resolved]
  - Impaired healing [Unknown]
  - Implant site infection [Unknown]
  - Myalgia [Recovered/Resolved]
  - Drug withdrawal syndrome [Recovered/Resolved]
  - Medical device discomfort [Unknown]
